FAERS Safety Report 8122473-3 (Version None)
Quarter: 2012Q1

REPORT INFORMATION
  Report Type: 
  Country: None (occurrence: None)
  Receive Date: 20120208
  Receipt Date: 20110322
  Transmission Date: 20120608
  Serious: No
  Sender: FDA-Public Use
  Company Number: US-ASTRAZENECA-2011SE16622

PATIENT
  Age: 35 Year
  Sex: Male

DRUGS (1)
  1. ACCOLATE [Suspect]
     Route: 048

REACTIONS (1)
  - BRONCHITIS [None]
